FAERS Safety Report 8132372-9 (Version None)
Quarter: 2012Q1

REPORT INFORMATION
  Report Type: 
  Country: None (occurrence: None)
  Receive Date: 20120213
  Receipt Date: 20120201
  Transmission Date: 20120608
  Serious: Yes (Hospitalization)
  Sender: FDA-Public Use
  Company Number: US-ELI_LILLY_AND_COMPANY-US201002001496

PATIENT
  Sex: Female

DRUGS (3)
  1. FORTEO [Suspect]
     Dosage: 20 UG, QD
     Dates: end: 20120127
  2. ANTIBIOTICS [Concomitant]
  3. FORTEO [Suspect]
     Indication: OSTEOPOROSIS
     Dosage: 20 UG, DAILY (1/D)

REACTIONS (8)
  - URINARY TRACT INFECTION [None]
  - MUSCLE SPASMS [None]
  - LIMB DISCOMFORT [None]
  - PAIN IN EXTREMITY [None]
  - MALAISE [None]
  - DRUG DOSE OMISSION [None]
  - DYSSTASIA [None]
  - GAIT DISTURBANCE [None]
